FAERS Safety Report 6186061-0 (Version None)
Quarter: 2009Q2

REPORT INFORMATION
  Report Type: 
  Country: None (occurrence: None)
  Receive Date: 20090507
  Receipt Date: 20090427
  Transmission Date: 20091009
  Serious: Yes (Hospitalization)
  Sender: FDA-Public Use
  Company Number: 234676K09USA

PATIENT
  Age: 50 Year
  Sex: Female

DRUGS (5)
  1. REBIF [Suspect]
     Indication: MULTIPLE SCLEROSIS
     Dosage: 44 MCG, 3 IN 1 WEEKS, SUBCUTANEOUS
     Route: 058
     Dates: start: 20080523
  2. TRAZODONE HCL [Concomitant]
  3. ADDERALL (OBETROL /01345401/) [Concomitant]
  4. ESTROTEST HS (ESTROTEST) [Concomitant]
  5. BACLOFEN [Concomitant]

REACTIONS (16)
  - ABDOMINAL DISCOMFORT [None]
  - ANXIETY [None]
  - CARPAL TUNNEL SYNDROME [None]
  - CHEST DISCOMFORT [None]
  - DIPLOPIA [None]
  - DYSPNOEA [None]
  - FATIGUE [None]
  - HEADACHE [None]
  - MUSCLE TIGHTNESS [None]
  - NASOPHARYNGITIS [None]
  - PAINFUL RESPIRATION [None]
  - STRESS [None]
  - VISUAL ACUITY REDUCED [None]
  - VOMITING [None]
  - WEIGHT INCREASED [None]
  - WHITE BLOOD CELL COUNT DECREASED [None]
